FAERS Safety Report 4299018-1 (Version None)
Quarter: 2004Q1

REPORT INFORMATION
  Report Type: 
  Country: None (occurrence: None)
  Receive Date: 20040217
  Receipt Date: 20040202
  Transmission Date: 20041129
  Serious: Yes (Other)
  Sender: FDA-Public Use
  Company Number: 2004007535

PATIENT
  Age: 13 Year
  Sex: Male
  Weight: 48.0813 kg

DRUGS (8)
  1. ZOLOFT [Suspect]
     Indication: ATTENTION DEFICIT/HYPERACTIVITY DISORDER
     Dosage: 50 MG (DAILY), ORAL
     Route: 048
     Dates: start: 20030101
  2. METHYLPHENIDATE HCL [Suspect]
     Indication: ILL-DEFINED DISORDER
     Dosage: 20 MG (DAILY)
  3. ATOMOXETINE HYDROCHLORIDE (ATOMOXETINE HYDROCHLORIDE) [Suspect]
     Indication: ILL-DEFINED DISORDER
     Dosage: 36 MG (BID),
     Dates: start: 20031201
  4. SALMETEROL XINAFOATE (SALMETEROL XINAFOATE) [Suspect]
     Indication: ASTHMA
     Dates: start: 20031101
  5. LEVOTHYROXINE SODIUM [Concomitant]
  6. BUPROPION HYDROCHLORIDE (BYPROPION HYDROCHLORIDE) [Concomitant]
  7. FLUTICASONE PROPIONATE [Concomitant]
  8. SALBUTAMOL (SALBUTAMOL) [Concomitant]

REACTIONS (7)
  - ABNORMAL BEHAVIOUR [None]
  - ANGER [None]
  - ASTHMA [None]
  - EMOTIONAL DISORDER [None]
  - FEELING ABNORMAL [None]
  - PSYCHOTIC DISORDER [None]
  - SCREAMING [None]
